FAERS Safety Report 19039323 (Version 2)
Quarter: 2022Q2

REPORT INFORMATION
  Report Type: Spontaneous
  Country: GB (occurrence: GB)
  Receive Date: 20210322
  Receipt Date: 20220606
  Transmission Date: 20220721
  Serious: Yes (Hospitalization)
  Sender: FDA-Public Use
  Company Number: None

PATIENT
  Age: 66 Year
  Sex: Male

DRUGS (3)
  1. TOCILIZUMAB [Suspect]
     Active Substance: TOCILIZUMAB
     Indication: Coronavirus infection
     Route: 065
     Dates: start: 20210128
  2. DEXAMETHASONE [Suspect]
     Active Substance: DEXAMETHASONE
     Indication: Coronavirus infection
     Route: 065
     Dates: start: 20210124, end: 20210203
  3. IBRUTINIB [Concomitant]
     Active Substance: IBRUTINIB
     Indication: Chronic lymphocytic leukaemia

REACTIONS (7)
  - Aspergillus infection [Unknown]
  - Sinusitis [Recovered/Resolved]
  - Infection [Recovered/Resolved]
  - Diabetes mellitus [Recovered/Resolved]
  - Fungal infection [Recovered/Resolved]
  - Brain abscess [Recovering/Resolving]
  - Hemiparesis [Unknown]

NARRATIVE: CASE EVENT DATE: 20210208
